FAERS Safety Report 25978840 (Version 1)
Quarter: 2025Q4

REPORT INFORMATION
  Report Type: Spontaneous
  Country: EU (occurrence: EU)
  Receive Date: 20251030
  Receipt Date: 20251030
  Transmission Date: 20260118
  Serious: Yes (Other)
  Sender: AUROBINDO
  Company Number: EU-AMGEN-POLSP2025203365

PATIENT
  Age: 56 Year
  Sex: Female

DRUGS (9)
  1. OXALIPLATIN [Suspect]
     Active Substance: OXALIPLATIN
     Indication: Colorectal cancer stage III
     Dosage: 85 MILLIGRAM/SQ. METER (85 MILLIGRAM/SQ. METER, 1 DZ 2H)
     Route: 065
     Dates: start: 20230316
  2. VECTIBIX [Suspect]
     Active Substance: PANITUMUMAB
     Indication: Colorectal cancer stage III
     Dosage: 6 MILLIGRAM/KILOGRAM (6 MILLIGRAM/KILOGRAM, Q2WK, 1 DZ INFUSION 60-MIN)
     Route: 042
     Dates: start: 20230316, end: 20240214
  3. VECTIBIX [Suspect]
     Active Substance: PANITUMUMAB
     Dosage: 6 MILLIGRAM/KILOGRAM (6 MILLIGRAM/KILOGRAM, Q2WK, 1 DZ INFUSION 60-MIN)
     Route: 042
     Dates: start: 20240315, end: 20241205
  4. VECTIBIX [Suspect]
     Active Substance: PANITUMUMAB
     Dosage: UNK (UNK UNK, Q2WK, REDUCED UP TO 80%.)
     Route: 042
     Dates: start: 20241220
  5. VECTIBIX [Suspect]
     Active Substance: PANITUMUMAB
     Dosage: UNK (UNK UNK, Q3WK)
     Route: 042
     Dates: start: 20250218
  6. LEVOLEUCOVORIN [Suspect]
     Active Substance: LEVOLEUCOVORIN
     Indication: Colorectal cancer stage III
     Dosage: 100 MILLIGRAM/SQ. METER (100 MILLIGRAM/SQ. METER, 1.2 DZ 2H)
     Route: 042
     Dates: start: 20230316
  7. FLUOROURACIL [Suspect]
     Active Substance: FLUOROURACIL
     Indication: Colorectal cancer stage III
     Dosage: 600 MILLIGRAM/SQ. METER (600 MILLIGRAM/SQ. METER, 1-2 DZ INFUSION 22 HOURS)
     Route: 042
  8. FLUOROURACIL [Suspect]
     Active Substance: FLUOROURACIL
     Dosage: 400 MILLIGRAM/SQ. METER (400 MILLIGRAM/SQ. METER, BOLUS 1-2 DZ)
     Route: 042
     Dates: start: 20230316
  9. DOXYCYCLINE [Concomitant]
     Active Substance: DOXYCYCLINE
     Indication: Prophylaxis
     Dosage: 1 DOSAGE FORM (1 DOSAGE FORM, 2X A DAY FOR 7 DAYS, THEN 100MG X A DAY WAS INCLUDED)
     Route: 065

REACTIONS (4)
  - Hepatotoxicity [Recovering/Resolving]
  - Paronychia [Unknown]
  - Skin toxicity [Unknown]
  - Scabies [Unknown]

NARRATIVE: CASE EVENT DATE: 20240214
